FAERS Safety Report 26120201 (Version 2)
Quarter: 2025Q4

REPORT INFORMATION
  Report Type: Spontaneous
  Country: EU (occurrence: EU)
  Receive Date: 20251204
  Receipt Date: 20251215
  Transmission Date: 20260117
  Serious: Yes (Life-Threatening)
  Sender: TEVA
  Company Number: EU-TEVA-VS-3399013

PATIENT
  Age: 57 Year
  Sex: Male

DRUGS (4)
  1. PREGABALIN [Suspect]
     Active Substance: PREGABALIN
     Indication: Pain
     Route: 065
  2. ROPIVACAINE [Suspect]
     Active Substance: ROPIVACAINE
     Indication: Anaesthesia
     Dosage: ROPIVACAINE 10% WAS ADMINISTERED VIA A 40 ML PUMP
     Route: 037
  3. ROPIVACAINE [Suspect]
     Active Substance: ROPIVACAINE
     Indication: Anaesthesia
     Dosage: ROPIVACAINE 7.5% AT A DOSE OF 2 ML
     Route: 037
  4. MORPHINE [Suspect]
     Active Substance: MORPHINE
     Indication: Pain
     Route: 037

REACTIONS (6)
  - Circulatory collapse [Unknown]
  - Disorientation [Unknown]
  - Drug intolerance [Unknown]
  - Product administration error [Unknown]
  - Dizziness [Unknown]
  - Device dislocation [Unknown]
